FAERS Safety Report 14619814 (Version 1)
Quarter: 2018Q1

REPORT INFORMATION
  Report Type: Spontaneous
  Country: US (occurrence: US)
  Receive Date: 20180309
  Receipt Date: 20180309
  Transmission Date: 20180509
  Serious: No
  Sender: FDA-Public Use
  Company Number: None

PATIENT
  Age: 4 Month
  Sex: Female

DRUGS (1)
  1. GONAK HYPROMELLOSE [Suspect]
     Active Substance: HYPROMELLOSE 2906 (4000 MPA.S)\HYPROMELLOSE 2906 (50 MPA.S)

REACTIONS (4)
  - Reaction to preservatives [None]
  - Corneal opacity [None]
  - Product use in unapproved indication [None]
  - Toxicity to various agents [None]

NARRATIVE: CASE EVENT DATE: 201711
